FAERS Safety Report 12165984 (Version 3)
Quarter: 2018Q1

REPORT INFORMATION
  Report Type: Spontaneous
  Country: FR (occurrence: FR)
  Receive Date: 20160309
  Receipt Date: 20180329
  Transmission Date: 20180508
  Serious: Yes (Congenital Anomaly, Other)
  Sender: FDA-Public Use
  Company Number: FR-ABBVIE-16P-056-1577238-00

PATIENT
  Sex: Male

DRUGS (1)
  1. DEPAKINE [Suspect]
     Active Substance: VALPROATE SODIUM
     Indication: MATERNAL EXPOSURE TIMING UNSPECIFIED
     Route: 064

REACTIONS (20)
  - Hypoacusis [Unknown]
  - Aggression [Unknown]
  - Developmental delay [Unknown]
  - Congenital anomaly [Not Recovered/Not Resolved]
  - Congenital neurological disorder [Not Recovered/Not Resolved]
  - Penis disorder [Unknown]
  - Bronchitis [Unknown]
  - Foetal exposure during pregnancy [Unknown]
  - Obesity [Unknown]
  - Asthma [Unknown]
  - Erectile dysfunction [Unknown]
  - Abnormal behaviour [Not Recovered/Not Resolved]
  - Urinary hesitation [Unknown]
  - Mental impairment [Unknown]
  - Astigmatism [Unknown]
  - Hypospadias [Recovered/Resolved]
  - Speech disorder developmental [Unknown]
  - Bulimia nervosa [Unknown]
  - Constipation [Unknown]
  - Myopia [Unknown]
